FAERS Safety Report 22146147 (Version 1)
Quarter: 2023Q1

REPORT INFORMATION
  Report Type: Spontaneous
  Country: US (occurrence: US)
  Receive Date: 20230328
  Receipt Date: 20230328
  Transmission Date: 20230417
  Serious: No
  Sender: FDA-Public Use
  Company Number: US-BIOGEN-2020BI00824738

PATIENT
  Age: 44 Year
  Sex: Female

DRUGS (4)
  1. TECFIDERA [Suspect]
     Active Substance: DIMETHYL FUMARATE
     Indication: Multiple sclerosis
     Dosage: MAINTENANCE DOSE
     Route: 050
     Dates: start: 20191230
  2. TECFIDERA [Suspect]
     Active Substance: DIMETHYL FUMARATE
     Route: 050
     Dates: start: 20191223, end: 20191229
  3. TECFIDERA [Suspect]
     Active Substance: DIMETHYL FUMARATE
     Route: 050
     Dates: start: 201911
  4. KEPPRA [Concomitant]
     Active Substance: LEVETIRACETAM
     Indication: Epilepsy
     Route: 050

REACTIONS (6)
  - Balance disorder [Unknown]
  - Mobility decreased [Recovered/Resolved]
  - Muscle spasms [Recovered/Resolved]
  - Pain [Recovered/Resolved]
  - Flushing [Unknown]
  - Nausea [Unknown]

NARRATIVE: CASE EVENT DATE: 20191223
